FAERS Safety Report 4320504-X (Version None)
Quarter: 2004Q1

REPORT INFORMATION
  Report Type: 
  Country: None (occurrence: None)
  Receive Date: 20040322
  Receipt Date: 20040311
  Transmission Date: 20041129
  Serious: Yes (Death)
  Sender: FDA-Public Use
  Company Number: 200413226GDDC

PATIENT
  Age: 88 Year
  Sex: Female

DRUGS (6)
  1. ENOXAPARIN SODIUM [Suspect]
     Indication: ACUTE MYOCARDIAL INFARCTION
     Route: 058
     Dates: start: 20040218, end: 20040227
  2. ENOXAPARIN SODIUM [Suspect]
     Indication: ATRIAL FIBRILLATION
     Route: 058
     Dates: start: 20040218, end: 20040227
  3. AAS [Concomitant]
     Indication: CORONARY ARTERY DISEASE
     Route: 048
  4. MONOCORDIL [Concomitant]
     Indication: CORONARY ARTERY DISEASE
     Route: 048
  5. RANITIDINE [Concomitant]
  6. AMOXICILLIN AND CLAVULANATE POTASSIUM [Concomitant]
     Indication: RESPIRATORY TRACT INFECTION

REACTIONS (2)
  - HYPOVOLAEMIC SHOCK [None]
  - SUBCUTANEOUS HAEMATOMA [None]
